FAERS Safety Report 11060220 (Version 1)
Quarter: 2015Q2

REPORT INFORMATION
  Report Type: Report from Study
  Country: US (occurrence: US)
  Receive Date: 20150423
  Receipt Date: 20150423
  Transmission Date: 20150821
  Serious: Yes (Other)
  Sender: FDA-Public Use
  Company Number: US-AMGEN-USASL2015025844

PATIENT
  Age: 69 Year
  Sex: Male
  Weight: 84.8 kg

DRUGS (1)
  1. KYPROLIS [Suspect]
     Active Substance: CARFILZOMIB
     Indication: PLASMA CELL MYELOMA
     Dosage: 42 MG, 2 TIMES/WK
     Route: 042
     Dates: start: 20141118

REACTIONS (3)
  - Chronic obstructive pulmonary disease [Unknown]
  - Cardiac failure [Unknown]
  - Pneumonia [Unknown]

NARRATIVE: CASE EVENT DATE: 20150105
